FAERS Safety Report 8476313-3 (Version None)
Quarter: 2012Q2

REPORT INFORMATION
  Report Type: 
  Country: None (occurrence: None)
  Receive Date: 20120628
  Receipt Date: 20120619
  Transmission Date: 20120825
  Serious: Yes (Life-Threatening, Hospitalization, Other)
  Sender: FDA-Public Use
  Company Number: DE-BRISTOL-MYERS SQUIBB COMPANY-16697955

PATIENT

DRUGS (1)
  1. CHOLESTYRAMINE [Suspect]

REACTIONS (2)
  - DYSPHAGIA [None]
  - ADVERSE EVENT [None]
